FAERS Safety Report 7557636-9 (Version None)
Quarter: 2011Q2

REPORT INFORMATION
  Report Type: 
  Country: None (occurrence: None)
  Receive Date: 20110620
  Receipt Date: 20110607
  Transmission Date: 20111010
  Serious: Yes (Death, Life-Threatening)
  Sender: FDA-Public Use
  Company Number: JP-ACTELION-A-CH2011-48899

PATIENT
  Sex: Male

DRUGS (16)
  1. TEPRENONE [Concomitant]
  2. LANSOPRAZOLE [Concomitant]
  3. TRACLEER [Suspect]
     Indication: PULMONARY ARTERIAL HYPERTENSION
     Dosage: 62.5 MG, BID
     Route: 048
     Dates: start: 20110310, end: 20110424
  4. VERAPAMIL HCL [Suspect]
     Indication: PALPITATIONS
     Dosage: UNK
     Dates: start: 20110417, end: 20110417
  5. FUROSEMIDE [Concomitant]
  6. WARFARIN SODIUM [Concomitant]
  7. ETODOLAC [Concomitant]
  8. ZOLPIDEM TARTRATE [Concomitant]
  9. DIGOXIN [Suspect]
     Indication: SINUS TACHYCARDIA
     Dosage: UNK
     Dates: start: 20110415, end: 20110424
  10. UBIDECARENONE [Concomitant]
  11. BERAPROST SODIUM [Concomitant]
  12. SILDENAFIL CITRATE [Concomitant]
  13. ETIZOLAM [Concomitant]
  14. CETIRIZINE HYDROCHLORIDE [Concomitant]
  15. BROTIZOLAM [Concomitant]
  16. OXYGEN [Concomitant]

REACTIONS (4)
  - BLOOD PRESSURE DECREASED [None]
  - OXYGEN SATURATION DECREASED [None]
  - MALAISE [None]
  - LOSS OF CONSCIOUSNESS [None]
